FAERS Safety Report 4479994-4 (Version None)
Quarter: 2004Q3

REPORT INFORMATION
  Report Type: 
  Country: None (occurrence: None)
  Receive Date: 20040930
  Receipt Date: 20040713
  Transmission Date: 20050211
  Serious: No
  Sender: FDA-Public Use
  Company Number: 200410198BBE

PATIENT
  Age: 80 Year
  Sex: Male
  Weight: 86.1834 kg

DRUGS (3)
  1. GAMUNEX [Suspect]
     Indication: MYOSITIS
     Dosage: 40 G, TOTAL DAILY, INTRAVENOUS
     Route: 042
     Dates: start: 20040621, end: 20040625
  2. DIPHENHYDRAMINE HCL [Concomitant]
  3. SOLU-MEDROL [Concomitant]

REACTIONS (3)
  - ASTHENIA [None]
  - DIZZINESS [None]
  - MALAISE [None]
